FAERS Safety Report 25013643 (Version 1)
Quarter: 2025Q1

REPORT INFORMATION
  Report Type: Spontaneous
  Country: US (occurrence: US)
  Receive Date: 20250226
  Receipt Date: 20250226
  Transmission Date: 20250409
  Serious: Yes (Hospitalization)
  Sender: PFIZER
  Company Number: US-PFIZER INC-PV202400143273

PATIENT
  Age: 61 Year
  Sex: Female

DRUGS (3)
  1. TUKYSA [Suspect]
     Active Substance: TUCATINIB
     Dosage: 200 MG, 2X/DAY (TUKYSA 50MG; 4 TABLETS TWICE DAILY)
  2. TUKYSA [Suspect]
     Active Substance: TUCATINIB
     Dosage: 4 DF, 2X/DAY (TAKE 4 TABLETS BY MOUTH 2 TIMES A DAY)
     Route: 048
     Dates: end: 20250210
  3. MIRTAZAPINE [Concomitant]
     Active Substance: MIRTAZAPINE

REACTIONS (2)
  - Illness [Unknown]
  - Gait disturbance [Unknown]
